FAERS Safety Report 11096153 (Version 1)
Quarter: 2015Q2

REPORT INFORMATION
  Report Type: Spontaneous
  Country: US (occurrence: None)
  Receive Date: 20150505
  Receipt Date: 20150505
  Transmission Date: 20150821
  Serious: Yes (Other)
  Sender: FDA-Public Use
  Company Number: ADE15-036

PATIENT
  Age: 76 Year
  Sex: Female
  Weight: 59.9 kg

DRUGS (3)
  1. HEPARIN SODIUM INJECTION [Suspect]
     Active Substance: HEPARIN SODIUM
     Indication: PERCUTANEOUS CORONARY INTERVENTION
     Dosage: 7200 U TOTAL DOSE, IV
     Route: 042
     Dates: start: 20150429, end: 20150429
  2. FENTANYL. [Concomitant]
     Active Substance: FENTANYL
  3. MIDAZOLAM [Concomitant]
     Active Substance: MIDAZOLAM\MIDAZOLAM HYDROCHLORIDE

REACTIONS (1)
  - Coagulation time prolonged [None]

NARRATIVE: CASE EVENT DATE: 20150429
